FAERS Safety Report 8132435-8 (Version None)
Quarter: 2012Q1

REPORT INFORMATION
  Report Type: 
  Country: None (occurrence: None)
  Receive Date: 20120208
  Receipt Date: 20120131
  Transmission Date: 20120608
  Serious: Yes (Hospitalization)
  Sender: FDA-Public Use
  Company Number: 2012SP005449

PATIENT
  Age: 58 Year
  Sex: Female

DRUGS (3)
  1. PEG-INTRON [Suspect]
     Indication: PRODUCT USED FOR UNKNOWN INDICATION
     Dosage: 100;800;600 MG,MCG,QD
     Dates: start: 20120109
  2. PEG-INTRON [Suspect]
     Indication: PRODUCT USED FOR UNKNOWN INDICATION
     Dosage: 100;800;600 MG,MCG,QD
     Dates: end: 20120108
  3. BOCEPREVIR  (SCH-503034) [Suspect]
     Indication: PRODUCT USED FOR UNKNOWN INDICATION
     Dosage: 800 MG, TID
     Dates: start: 20111119

REACTIONS (1)
  - SEPTIC SHOCK [None]
